FAERS Safety Report 20701828 (Version 2)
Quarter: 2022Q2

REPORT INFORMATION
  Report Type: Spontaneous
  Country: US (occurrence: US)
  Receive Date: 20220412
  Receipt Date: 20220614
  Transmission Date: 20220720
  Serious: Yes (Death, Hospitalization, Other)
  Sender: FDA-Public Use
  Company Number: US-INCYTE CORPORATION-2022IN003551

PATIENT

DRUGS (2)
  1. JAKAFI [Suspect]
     Active Substance: RUXOLITINIB
     Indication: Graft versus host disease
     Dosage: 5 MILLIGRAM, BID
     Route: 048
     Dates: start: 20210928
  2. JAKAFI [Suspect]
     Active Substance: RUXOLITINIB
     Dosage: WEANED DOSE
     Route: 065
     Dates: start: 20220209

REACTIONS (10)
  - Death [Fatal]
  - Thrombotic microangiopathy [Unknown]
  - Drug level increased [Unknown]
  - Disseminated aspergillosis [Unknown]
  - Acute respiratory failure [Unknown]
  - Cerebral haemorrhage [Unknown]
  - Immunodeficiency [Unknown]
  - Chronic graft versus host disease in liver [Unknown]
  - Lung opacity [Unknown]
  - Nervous system disorder [Unknown]

NARRATIVE: CASE EVENT DATE: 20220211
